FAERS Safety Report 5809564-4 (Version None)
Quarter: 2008Q3

REPORT INFORMATION
  Report Type: 
  Country: None (occurrence: None)
  Receive Date: 20080709
  Receipt Date: 20080603
  Transmission Date: 20090109
  Serious: Yes (Other)
  Sender: FDA-Public Use
  Company Number: 821#3#2008-0004

PATIENT
  Age: 73 Year
  Sex: Female

DRUGS (4)
  1. MONOKET-RETARD (ISOSORBIDE MONONITRATE) [Suspect]
     Indication: CARDIAC FAILURE
     Dosage: 50 MG (50 MG 1 IN 1 DAY(S)) ORAL
     Route: 048
     Dates: start: 20080410, end: 20080415
  2. INDAPAMIDE [Concomitant]
  3. RAMIPRIL [Concomitant]
  4. RUTACEAE [Concomitant]

REACTIONS (4)
  - DIZZINESS [None]
  - HEADACHE [None]
  - VISUAL IMPAIRMENT [None]
  - VOMITING [None]
